FAERS Safety Report 16959983 (Version 1)
Quarter: 2019Q4

REPORT INFORMATION
  Report Type: Spontaneous
  Country: US (occurrence: US)
  Receive Date: 20191025
  Receipt Date: 20191025
  Transmission Date: 20200122
  Serious: No
  Sender: FDA-Public Use
  Company Number: US-SUNOVION-2019SUN004327

PATIENT
  Sex: Female

DRUGS (1)
  1. BROVANA [Suspect]
     Active Substance: ARFORMOTEROL TARTRATE
     Dosage: ONE VIAL OR LESS PER DAY
     Route: 055

REACTIONS (3)
  - Anxiety [Unknown]
  - Therapeutic product effect increased [Unknown]
  - Off label use [Unknown]
